FAERS Safety Report 7280943-4 (Version None)
Quarter: 2011Q1

REPORT INFORMATION
  Report Type: 
  Country: None (occurrence: None)
  Receive Date: 20110208
  Receipt Date: 20110118
  Transmission Date: 20110831
  Serious: Yes (Other)
  Sender: FDA-Public Use
  Company Number: AU-GILEAD-2011-0036100

PATIENT
  Sex: Male

DRUGS (1)
  1. ADEFOVIR DIPIVOXIL KIT [Suspect]
     Indication: HEPATITIS B

REACTIONS (2)
  - BLOOD PHOSPHORUS DECREASED [None]
  - RENAL FAILURE CHRONIC [None]
